FAERS Safety Report 17012874 (Version 3)
Quarter: 2019Q4

REPORT INFORMATION
  Report Type: Spontaneous
  Country: JP (occurrence: JP)
  Receive Date: 20191109
  Receipt Date: 20191204
  Transmission Date: 20200122
  Serious: Yes (Hospitalization, Other)
  Sender: FDA-Public Use
  Company Number: JP-MALLINCKRODT-T201907328

PATIENT
  Sex: Male

DRUGS (3)
  1. LOSARTAN POTASSIUM. [Concomitant]
     Active Substance: LOSARTAN POTASSIUM
     Indication: PRODUCT USED FOR UNKNOWN INDICATION
     Dosage: UNK
     Route: 048
  2. LOXONIN [Concomitant]
     Active Substance: LOXOPROFEN SODIUM
     Indication: HEADACHE
     Dosage: UNK
     Route: 065
  3. AMITIZA [Suspect]
     Active Substance: LUBIPROSTONE
     Indication: PRODUCT USED FOR UNKNOWN INDICATION
     Dosage: UNK
     Route: 048

REACTIONS (16)
  - Gingival bleeding [Unknown]
  - Cough [Unknown]
  - Infection [Unknown]
  - Flatulence [Unknown]
  - Rash [Unknown]
  - Dry skin [Recovering/Resolving]
  - Oropharyngeal pain [Unknown]
  - Dry mouth [Unknown]
  - Anuria [Unknown]
  - Liver function test decreased [Unknown]
  - Blood pressure decreased [Unknown]
  - Drug ineffective [Unknown]
  - Rhabdomyolysis [Unknown]
  - Angioedema [Unknown]
  - Erythema [Recovering/Resolving]
  - Chest discomfort [Unknown]
